FAERS Safety Report 15843969 (Version 2)
Quarter: 2019Q4

REPORT INFORMATION
  Report Type: Spontaneous
  Country: US (occurrence: US)
  Receive Date: 20190118
  Receipt Date: 20191027
  Transmission Date: 20200122
  Serious: No
  Sender: FDA-Public Use
  Company Number: US-ARBOR PHARMACEUTICALS, LLC-US-2018ARB001090

PATIENT
  Sex: Female

DRUGS (2)
  1. TRIPTODUR [Suspect]
     Active Substance: TRIPTORELIN
     Dosage: UNK, SINGLE
     Route: 030
  2. TRIPTODUR [Suspect]
     Active Substance: TRIPTORELIN
     Indication: PRODUCT USED FOR UNKNOWN INDICATION
     Dosage: UNK UNK, SINGLE
     Route: 030
     Dates: start: 20171129, end: 20171129

REACTIONS (6)
  - Ear infection [Unknown]
  - Nausea [Unknown]
  - Urinary tract infection [Unknown]
  - Drug ineffective [Unknown]
  - Acne [Unknown]
  - Migraine [Unknown]
